FAERS Safety Report 5636612-7 (Version None)
Quarter: 2008Q1

REPORT INFORMATION
  Report Type: 
  Country: None (occurrence: None)
  Receive Date: 20080225
  Receipt Date: 20080211
  Transmission Date: 20080703
  Serious: Yes (Death, Hospitalization)
  Sender: FDA-Public Use
  Company Number: NSADSS2002006426

PATIENT
  Age: 3 Week
  Sex: Male
  Weight: 0.68 kg

DRUGS (5)
  1. REMICADE [Suspect]
     Route: 041
  2. REMICADE [Suspect]
     Indication: DRUG EXPOSURE DURING PREGNANCY
     Route: 041
  3. MESALAMINE [Concomitant]
     Indication: DRUG EXPOSURE DURING PREGNANCY
  4. METRONIDAZOLE HCL [Concomitant]
     Indication: DRUG EXPOSURE DURING PREGNANCY
  5. AZATHIOPRINE [Concomitant]
     Indication: DRUG EXPOSURE DURING PREGNANCY

REACTIONS (3)
  - CEREBRAL HAEMORRHAGE NEONATAL [None]
  - PREMATURE BABY [None]
  - PULMONARY HAEMORRHAGE [None]
